FAERS Safety Report 10616426 (Version 2)
Quarter: 2015Q1

REPORT INFORMATION
  Report Type: Spontaneous
  Country: US (occurrence: US)
  Receive Date: 20141201
  Receipt Date: 20150105
  Transmission Date: 20150720
  Serious: No
  Sender: FDA-Public Use
  Company Number: US-PFIZER INC-2014325423

PATIENT
  Age: 62 Year
  Sex: Female
  Weight: 79 kg

DRUGS (3)
  1. PREMARIN [Suspect]
     Active Substance: ESTROGENS, CONJUGATED
     Indication: UROGENITAL ATROPHY
     Dosage: 1 G, 3X/WEEK (AT THE BED TIME)
     Route: 067
     Dates: start: 20140916, end: 20141106
  2. PREMARIN [Suspect]
     Active Substance: ESTROGENS, CONJUGATED
     Indication: POSTOPERATIVE CARE
     Dosage: 1 G, 1X/WEEK
     Route: 067
     Dates: start: 2014
  3. LIPITOR [Concomitant]
     Active Substance: ATORVASTATIN CALCIUM
     Indication: BLOOD PRESSURE ABNORMAL
     Dosage: 10 MG, UNK

REACTIONS (5)
  - Breast tenderness [Recovered/Resolved]
  - Irritability [Recovered/Resolved]
  - Incorrect dose administered [Unknown]
  - Abdominal pain [Recovered/Resolved]
  - Drug dispensing error [Unknown]

NARRATIVE: CASE EVENT DATE: 20140916
